FAERS Safety Report 9695496 (Version 2)
Quarter: 2013Q4

REPORT INFORMATION
  Report Type: Report from Study
  Country: IT (occurrence: IT)
  Receive Date: 20131119
  Receipt Date: 20131119
  Transmission Date: 20140711
  Serious: Yes (Death, Life-Threatening)
  Sender: FDA-Public Use
  Company Number: IT-PFIZER INC-HQWYE380105DEC06

PATIENT
  Age: 83 Year
  Sex: Male
  Weight: 62 kg

DRUGS (4)
  1. GEMTUZUMAB OZOGAMICIN [Suspect]
     Indication: ACUTE MYELOID LEUKAEMIA
     Dosage: 5 MG, UNK
     Route: 042
     Dates: start: 20061118, end: 20061125
  2. GLAZIDIM [Concomitant]
     Dosage: 6 G, UNK
     Dates: start: 20061123
  3. LEVOFLOXACIN [Concomitant]
     Dosage: 500 MG, UNK
     Dates: start: 20061116
  4. TEICOPLANIN [Concomitant]
     Dosage: 600 MG, UNK
     Dates: start: 20061123

REACTIONS (4)
  - Colitis ischaemic [Not Recovered/Not Resolved]
  - Intestinal haemorrhage [Not Recovered/Not Resolved]
  - Acute respiratory distress syndrome [Fatal]
  - Pneumonia [Fatal]
